FAERS Safety Report 25990767 (Version 1)
Quarter: 2025Q4

REPORT INFORMATION
  Report Type: Report from Study
  Country: CO (occurrence: CO)
  Receive Date: 20251103
  Receipt Date: 20251103
  Transmission Date: 20260118
  Serious: Yes (Hospitalization)
  Sender: TAKEDA
  Company Number: CO-TAKEDA-2025TUS052335

PATIENT
  Age: 3 Year
  Sex: Female
  Weight: 17 kg

DRUGS (2)
  1. HUMAN IMMUNOGLOBULIN G\HYALURONIDASE RECOMBINANT HUMAN [Suspect]
     Active Substance: HUMAN IMMUNOGLOBULIN G\HYALURONIDASE (HUMAN RECOMBINANT)
     Indication: Primary immunodeficiency syndrome
     Dosage: 5 GRAM, 2/MONTH
     Dates: start: 20250516
  2. HUMAN IMMUNOGLOBULIN G\HYALURONIDASE RECOMBINANT HUMAN [Suspect]
     Active Substance: HUMAN IMMUNOGLOBULIN G\HYALURONIDASE (HUMAN RECOMBINANT)
     Dosage: 10 GRAM, MONTHLY

REACTIONS (9)
  - COVID-19 [Recovered/Resolved]
  - Epistaxis [Recovered/Resolved]
  - Puncture site swelling [Unknown]
  - Puncture site erythema [Unknown]
  - Puncture site pruritus [Unknown]
  - Weight increased [Unknown]
  - Body height increased [Unknown]
  - Rash macular [Unknown]
  - Skin lesion [Unknown]

NARRATIVE: CASE EVENT DATE: 20250531
